FAERS Safety Report 18258630 (Version 1)
Quarter: 2020Q3

REPORT INFORMATION
  Report Type: Spontaneous
  Country: DE (occurrence: DE)
  Receive Date: 20200911
  Receipt Date: 20200911
  Transmission Date: 20201103
  Serious: Yes (Disabling)
  Sender: FDA-Public Use
  Company Number: DE-ALLERGAN-2034529US

PATIENT
  Sex: Female

DRUGS (1)
  1. CARIPRAZINE HCL ? BP [Suspect]
     Active Substance: CARIPRAZINE HYDROCHLORIDE
     Indication: PRODUCT USED FOR UNKNOWN INDICATION

REACTIONS (4)
  - Gait disturbance [Unknown]
  - Movement disorder [Unknown]
  - Musculoskeletal stiffness [Unknown]
  - Bradykinesia [Unknown]
